FAERS Safety Report 9183104 (Version 1)
Quarter: 2012Q4

REPORT INFORMATION
  Report Type: 
  Country: ID (occurrence: ID)
  Receive Date: 20121031
  Receipt Date: 20121031
  Transmission Date: 20130627
  Serious: Yes (Death, Hospitalization)
  Sender: FDA-Public Use
  Company Number: PHHY2012ID097784

PATIENT
  Sex: Male

DRUGS (2)
  1. GLIVEC [Suspect]
     Indication: CHRONIC MYELOID LEUKAEMIA
     Dosage: 400 mg daily
     Route: 048
     Dates: end: 201206
  2. GLIVEC [Suspect]
     Dosage: 100 mg daily
     Route: 048
     Dates: start: 201208, end: 20121004

REACTIONS (4)
  - Myocardial infarction [Fatal]
  - Pneumonia [Fatal]
  - Dyspnoea [Unknown]
  - Hypertension [Unknown]
